FAERS Safety Report 4468010-6 (Version None)
Quarter: 2004Q4

REPORT INFORMATION
  Report Type: 
  Country: None (occurrence: None)
  Receive Date: 20041001
  Receipt Date: 20040830
  Transmission Date: 20050328
  Serious: Yes (Hospitalization, Disabling)
  Sender: FDA-Public Use
  Company Number: 8798

PATIENT
  Age: 45 Year
  Sex: Male

DRUGS (10)
  1. METHOTREXATE [Suspect]
  2. ADRIAMYCIN PFS [Suspect]
  3. ADRUCIL [Suspect]
  4. MUTAMYCIN [Concomitant]
  5. ONCOVIN [Concomitant]
  6. PLATINOL [Concomitant]
  7. CYTOXAN [Concomitant]
  8. MUSTARGEN [Concomitant]
  9. CYANOCOBALAMIN [Concomitant]
  10. FOLIC ACID [Concomitant]

REACTIONS (40)
  - AGITATION [None]
  - ANOREXIA [None]
  - BACTERIAL INFECTION [None]
  - BILIARY TRACT DISORDER [None]
  - BLOOD CULTURE POSITIVE [None]
  - CATARACT [None]
  - CHILLS [None]
  - CHOLESTASIS [None]
  - COLITIS [None]
  - COMPUTERISED TOMOGRAM ABNORMAL [None]
  - CONSTIPATION [None]
  - CONVULSION [None]
  - DEAFNESS [None]
  - DENTAL CARIES [None]
  - DYSPNOEA [None]
  - GALLBLADDER DISORDER [None]
  - HEADACHE [None]
  - HEPATIC STEATOSIS [None]
  - IMMOBILE [None]
  - IMPAIRED GASTRIC EMPTYING [None]
  - JOINT CONTRACTURE [None]
  - LEUKOCYTOCLASTIC VASCULITIS [None]
  - LEUKOPENIA [None]
  - LUNG NEOPLASM [None]
  - MALNUTRITION [None]
  - MENTAL DISORDER [None]
  - MOUTH ULCERATION [None]
  - MYELODYSPLASTIC SYNDROME [None]
  - MYOPATHY STEROID [None]
  - NEUROPATHY [None]
  - NEUTROPHIL COUNT DECREASED [None]
  - OSTEOPOROSIS [None]
  - PERNICIOUS ANAEMIA [None]
  - POLYARTERITIS NODOSA [None]
  - PYREXIA [None]
  - SKIN ULCER [None]
  - STAPHYLOCOCCAL SEPSIS [None]
  - TOOTH ABSCESS [None]
  - VOMITING [None]
  - WEIGHT DECREASED [None]
